FAERS Safety Report 18707262 (Version 20)
Quarter: 2025Q2

REPORT INFORMATION
  Report Type: Report from Study
  Country: US (occurrence: US)
  Receive Date: 20210106
  Receipt Date: 20250604
  Transmission Date: 20250717
  Serious: Yes (Other)
  Sender: TAKEDA
  Company Number: US-TAKEDA-2021TUS000195

PATIENT
  Sex: Female
  Weight: 96 kg

DRUGS (24)
  1. HUMAN IMMUNOGLOBULIN G [Suspect]
     Active Substance: HUMAN IMMUNOGLOBULIN G
     Indication: Immunodeficiency common variable
     Dosage: 10 GRAM, 1/WEEK
     Dates: start: 20201218
  2. MOUNJARO [Suspect]
     Active Substance: TIRZEPATIDE
     Indication: Product used for unknown indication
  3. ACETAMINOPHEN [Concomitant]
     Active Substance: ACETAMINOPHEN
  4. VALACYCLOVIR [Concomitant]
     Active Substance: VALACYCLOVIR HYDROCHLORIDE
  5. FLUTICASONE PROPIONATE [Concomitant]
     Active Substance: FLUTICASONE PROPIONATE
  6. TYLENOL [Concomitant]
     Active Substance: ACETAMINOPHEN
  7. HYDROCHLOROTHIAZIDE [Concomitant]
     Active Substance: HYDROCHLOROTHIAZIDE
  8. PRALUENT [Concomitant]
     Active Substance: ALIROCUMAB
  9. IRBESARTAN [Concomitant]
     Active Substance: IRBESARTAN
  10. Lmx [Concomitant]
  11. DIPHENHYDRAMINE HYDROCHLORIDE [Concomitant]
     Active Substance: DIPHENHYDRAMINE HYDROCHLORIDE
  12. ALPHA LIPOIC ACID [Concomitant]
     Active Substance: .ALPHA.-LIPOIC ACID
  13. BYDUREON BCISE [Concomitant]
     Active Substance: EXENATIDE
  14. GABAPENTIN [Concomitant]
     Active Substance: GABAPENTIN
  15. LEVOTHYROXINE SODIUM [Concomitant]
     Active Substance: LEVOTHYROXINE SODIUM
  16. EYLEA [Concomitant]
     Active Substance: AFLIBERCEPT
  17. AVASTIN [Concomitant]
     Active Substance: BEVACIZUMAB
  18. FOLIC ACID [Concomitant]
     Active Substance: FOLIC ACID
  19. FARXIGA [Concomitant]
     Active Substance: DAPAGLIFLOZIN PROPANEDIOL
  20. METHOTREXATE [Concomitant]
     Active Substance: METHOTREXATE
  21. EPINEPHRINE [Concomitant]
     Active Substance: EPINEPHRINE
  22. FLONASE [Concomitant]
     Active Substance: FLUTICASONE PROPIONATE
  23. LEVOTHYROXINE [Concomitant]
     Active Substance: LEVOTHYROXINE
  24. DIPHENHYDRAMINE [Concomitant]
     Active Substance: DIPHENHYDRAMINE

REACTIONS (17)
  - Meningitis aseptic [Unknown]
  - Seasonal allergy [Not Recovered/Not Resolved]
  - Weight decreased [Unknown]
  - Cyst [Unknown]
  - Nasal cyst [Unknown]
  - Sinus disorder [Unknown]
  - COVID-19 [Unknown]
  - Arthropod bite [Unknown]
  - Eye infection [Unknown]
  - Drug hypersensitivity [Unknown]
  - Product dose omission issue [Unknown]
  - Product distribution issue [Unknown]
  - Multiple allergies [Unknown]
  - Infusion site discharge [Unknown]
  - Sinusitis [Recovered/Resolved]
  - Infusion site haemorrhage [Unknown]
  - Infusion site bruising [Unknown]
